FAERS Safety Report 9233834 (Version 1)
Quarter: 2013Q2

REPORT INFORMATION
  Report Type: Spontaneous
  Country: US (occurrence: US)
  Receive Date: 20130416
  Receipt Date: 20130416
  Transmission Date: 20140414
  Serious: No
  Sender: FDA-Public Use
  Company Number: US-BANPHARM-20120070

PATIENT
  Sex: Female
  Weight: 54 kg

DRUGS (4)
  1. ALEVE LIQUID GELS 220 MG [Suspect]
     Indication: HEADACHE
     Dosage: 220 MG ONCE DAILY
     Route: 048
     Dates: start: 20120805, end: 20120806
  2. MULTIVITAMIN [Concomitant]
  3. VITAMIN B12 [Concomitant]
  4. CALCIUM [Concomitant]

REACTIONS (1)
  - Drug ineffective [Unknown]
